FAERS Safety Report 9910169 (Version 1)
Quarter: 2014Q1

REPORT INFORMATION
  Report Type: Spontaneous
  Country: US (occurrence: None)
  Receive Date: 20140218
  Receipt Date: 20140218
  Transmission Date: 20141002
  Serious: Yes (Hospitalization)
  Sender: FDA-Public Use
  Company Number: None

PATIENT
  Age: 39 Year
  Sex: Female
  Weight: 62.6 kg

DRUGS (3)
  1. CIPROFLOXACIN, 500 MG, WEST-WARD [Suspect]
     Indication: URINARY TRACT INFECTION
     Dosage: TAKEN BY MOUTH
     Dates: start: 20140205, end: 20140206
  2. SMZ-TMP DS [Suspect]
     Indication: URINARY TRACT INFECTION
     Dosage: TAKEN BY MOUTH
     Dates: start: 20140207
  3. SMZ-TMP DS [Suspect]
     Indication: DRUG HYPERSENSITIVITY
     Dosage: TAKEN BY MOUTH
     Dates: start: 20140207

REACTIONS (8)
  - Myalgia [None]
  - Nausea [None]
  - Headache [None]
  - Hypersensitivity [None]
  - Swollen tongue [None]
  - Chest pain [None]
  - Muscle strain [None]
  - Gastrointestinal disorder [None]
